FAERS Safety Report 5219725-3 (Version None)
Quarter: 2007Q1

REPORT INFORMATION
  Report Type: 
  Country: None (occurrence: None)
  Receive Date: 20070125
  Receipt Date: 20070115
  Transmission Date: 20070707
  Serious: Yes (Hospitalization, Disabling)
  Sender: FDA-Public Use
  Company Number: JP-PFIZER INC-2006129918

PATIENT
  Sex: Female
  Weight: 33 kg

DRUGS (14)
  1. SULPERAZON [Suspect]
     Indication: PNEUMONIA
     Route: 042
     Dates: start: 20061008, end: 20061014
  2. SULPERAZON [Suspect]
     Indication: PYREXIA
  3. UNASYN [Suspect]
     Indication: PNEUMONIA
     Route: 042
     Dates: start: 20061006, end: 20061008
  4. UNASYN [Suspect]
     Indication: PYREXIA
  5. CARBENIN [Suspect]
     Indication: PNEUMONIA
     Route: 042
     Dates: start: 20061015, end: 20061022
  6. CARBENIN [Suspect]
     Indication: PYREXIA
  7. GASTER [Suspect]
     Indication: PROPHYLAXIS
     Route: 042
     Dates: start: 20061007, end: 20061015
  8. CEFAZOLIN [Suspect]
     Dosage: DAILY DOSE:.5GRAM
     Route: 042
     Dates: start: 20061006, end: 20061006
  9. ELASPOL [Suspect]
     Indication: ACUTE RESPIRATORY DISTRESS SYNDROME
     Dosage: DAILY DOSE:100MG-FREQ:CONTINUOUS
     Route: 042
     Dates: start: 20061006, end: 20061015
  10. ROCEPHIN [Concomitant]
     Route: 042
  11. PANTOL [Concomitant]
     Dates: start: 20061007, end: 20061014
  12. DORMICUM FOR INJECTION [Concomitant]
     Dates: start: 20061006, end: 20061031
  13. FENTANEST [Concomitant]
     Route: 042
     Dates: start: 20061006, end: 20061031
  14. HANP [Concomitant]
     Route: 042
     Dates: start: 20061006, end: 20061015

REACTIONS (13)
  - ACUTE RESPIRATORY DISTRESS SYNDROME [None]
  - ANAESTHETIC COMPLICATION [None]
  - CELL MARKER INCREASED [None]
  - DRUG INEFFECTIVE [None]
  - HYPERSENSITIVITY [None]
  - INFECTION [None]
  - PNEUMONIA ASPIRATION [None]
  - POST PROCEDURAL COMPLICATION [None]
  - PULMONARY OEDEMA [None]
  - RESPIRATORY DISORDER [None]
  - RESTLESSNESS [None]
  - SPUTUM CULTURE POSITIVE [None]
  - STAPHYLOCOCCAL INFECTION [None]
